FAERS Safety Report 7120542-8 (Version None)
Quarter: 2010Q4

REPORT INFORMATION
  Report Type: 
  Country: None (occurrence: None)
  Receive Date: 20101124
  Receipt Date: 20101118
  Transmission Date: 20110411
  Serious: Yes (Other)
  Sender: FDA-Public Use
  Company Number: US-PFIZER INC-2010152606

PATIENT
  Sex: Male
  Weight: 14 kg

DRUGS (3)
  1. GENOTROPIN [Suspect]
     Indication: GROWTH RETARDATION
     Dosage: UNK
     Dates: start: 20090101, end: 20090601
  2. GENOTROPIN [Suspect]
     Dosage: UNK
     Dates: start: 20100801
  3. SINGULAIR ^DIECKMANN^ [Concomitant]
     Dosage: UNK

REACTIONS (2)
  - PNEUMONIA [None]
  - POLLAKIURIA [None]
